FAERS Safety Report 13737727 (Version 1)
Quarter: 2017Q3

REPORT INFORMATION
  Report Type: Spontaneous
  Country: US (occurrence: US)
  Receive Date: 20170710
  Receipt Date: 20170710
  Transmission Date: 20171127
  Serious: Yes (Other)
  Sender: FDA-Public Use
  Company Number: US-SAOL THERAPEUTICS-2016SAO00361

PATIENT
  Age: 63 Year
  Sex: Female

DRUGS (6)
  1. BACLOFEN. [Suspect]
     Active Substance: BACLOFEN
     Indication: BACK PAIN
     Dosage: 18.4 ?G, \DAY
     Dates: end: 20160722
  2. DILAUDID [Suspect]
     Active Substance: HYDROMORPHONE HYDROCHLORIDE
     Dosage: 5.995 MG, \DAY
     Route: 037
     Dates: end: 20160721
  3. CLONIDINE. [Suspect]
     Active Substance: CLONIDINE
     Dosage: 71.94 ?G, \DAY
     Route: 037
     Dates: end: 20160721
  4. CLONIDINE. [Suspect]
     Active Substance: CLONIDINE
     Dosage: 12 ?G, \DAY
     Route: 037
     Dates: end: 20160722
  5. BACLOFEN. [Suspect]
     Active Substance: BACLOFEN
     Indication: PAIN
     Dosage: 109.90 ?G, \DAY
     Route: 037
     Dates: end: 20160721
  6. DILAUDID [Suspect]
     Active Substance: HYDROMORPHONE HYDROCHLORIDE
     Dosage: 1 MG, \DAY
     Route: 037
     Dates: end: 20160722

REACTIONS (5)
  - Drug withdrawal syndrome [Unknown]
  - Device failure [Recovered/Resolved]
  - Off label use [Unknown]
  - Incorrect drug administration rate [Unknown]
  - Device infusion issue [Unknown]

NARRATIVE: CASE EVENT DATE: 20160721
